FAERS Safety Report 8718886 (Version 2)
Quarter: 2013Q4

REPORT INFORMATION
  Report Type: Spontaneous
  Country: US (occurrence: US)
  Receive Date: 20120811
  Receipt Date: 20131101
  Transmission Date: 20140711
  Serious: No
  Sender: FDA-Public Use
  Company Number: US-009507513-1207USA011581

PATIENT
  Age: 46 Year
  Sex: Female

DRUGS (5)
  1. ISENTRESS [Suspect]
     Indication: HIV INFECTION
     Dosage: 400 MG, BID
     Route: 048
     Dates: start: 201202
  2. TRUVADA [Concomitant]
  3. CELEXA [Concomitant]
  4. VALIUM [Concomitant]
  5. FLEXERIL [Concomitant]

REACTIONS (4)
  - Pain [Recovering/Resolving]
  - Subcutaneous abscess [Recovering/Resolving]
  - Weight decreased [Recovering/Resolving]
  - Anaemia [Recovering/Resolving]
